FAERS Safety Report 4641958-5 (Version None)
Quarter: 2005Q2

REPORT INFORMATION
  Report Type: 
  Country: None (occurrence: None)
  Receive Date: 20050420
  Receipt Date: 20050331
  Transmission Date: 20051028
  Serious: Yes (Other)
  Sender: FDA-Public Use
  Company Number: USA050394553

PATIENT
  Age: 68 Year
  Sex: Male

DRUGS (2)
  1. ALIMTA [Suspect]
     Dosage: 350 MG
     Dates: start: 20050331, end: 20050331
  2. VIDAZA [Concomitant]

REACTIONS (3)
  - ACCIDENTAL NEEDLE STICK [None]
  - INJECTION SITE PAIN [None]
  - WRONG DRUG ADMINISTERED [None]
